FAERS Safety Report 7087345-4 (Version None)
Quarter: 2010Q4

REPORT INFORMATION
  Report Type: 
  Country: None (occurrence: None)
  Receive Date: 20101108
  Receipt Date: 20101028
  Transmission Date: 20110411
  Serious: Yes (Other)
  Sender: FDA-Public Use
  Company Number: US-BIOGENIDEC-2010BI038012

PATIENT
  Age: 30 Year
  Sex: Female
  Weight: 99 kg

DRUGS (5)
  1. TYSABRI [Suspect]
     Indication: MULTIPLE SCLEROSIS
     Route: 042
     Dates: start: 20080101
  2. DEPAKOTE [Concomitant]
     Indication: PETIT MAL EPILEPSY
  3. DEPAKOTE [Concomitant]
     Indication: GRAND MAL CONVULSION
  4. ZONEGRAN [Concomitant]
     Indication: PETIT MAL EPILEPSY
  5. ZONEGRAN [Concomitant]
     Indication: GRAND MAL CONVULSION

REACTIONS (4)
  - HEADACHE [None]
  - NAUSEA [None]
  - PETIT MAL EPILEPSY [None]
  - VOMITING [None]
